FAERS Safety Report 8610886 (Version 5)
Quarter: 2013Q3

REPORT INFORMATION
  Report Type: Report from Study
  Country: US (occurrence: US)
  Receive Date: 20120612
  Receipt Date: 20130902
  Transmission Date: 20140515
  Serious: Yes (Hospitalization)
  Sender: FDA-Public Use
  Company Number: US-ACTELION-A-NJ2012-66792

PATIENT
  Age: 87 Year
  Sex: Female
  Weight: 87.98 kg

DRUGS (17)
  1. TRACLEER [Suspect]
     Indication: PULMONARY ARTERIAL HYPERTENSION
     Dosage: 125 MG, BID
     Route: 048
     Dates: start: 2010
  2. TRACLEER [Suspect]
     Dosage: 62.5 MG, BID
     Route: 048
     Dates: start: 2010
  3. VENTAVIS [Suspect]
     Indication: PULMONARY ARTERIAL HYPERTENSION
     Dosage: 5 MCG, 6 TIMES A DAY
     Route: 055
  4. LIPITOR [Concomitant]
     Dosage: 80 MG, QD
  5. POTASSIUM [Concomitant]
     Dosage: 10 MEQ, EVERY OTHER DAY IN THE MORNING
  6. COUMADIN [Concomitant]
     Dosage: 7.5 MG, QD
  7. LASIX [Concomitant]
     Dosage: 20 MG, QD
  8. DITROPAN XL [Concomitant]
     Dosage: 10 MG, QD (EXTENDED RELEASE 24 HOURS)
  9. PREVACID [Concomitant]
     Dosage: 30 MG, DELAYED RELEASE
  10. NEURONTIN [Concomitant]
     Dosage: 300 MG, BID
  11. DILTIAZEM CD [Concomitant]
     Dosage: 180 MG, QD
  12. OXYGEN [Concomitant]
     Dosage: 21 L, PER MIN DURING THE DAY
  13. OXYGEN [Concomitant]
     Dosage: 61 L, PER MIN PER NASAL CANNULA
  14. TYLENOL PM, EXTRA STRENGTH [Concomitant]
     Dosage: 50 MG - 25 MG BED TIME AS NEEDED
  15. ALBUTEROL SULFATE [Concomitant]
     Dosage: 90 MCG, Q4HRS
     Route: 055
  16. NITROGLYCERIN [Concomitant]
  17. DIGOXIN [Concomitant]

REACTIONS (11)
  - Diabetes mellitus management [Recovering/Resolving]
  - Blood glucose decreased [Recovering/Resolving]
  - Sick sinus syndrome [Recovering/Resolving]
  - Heart rate decreased [Recovering/Resolving]
  - Presyncope [Recovering/Resolving]
  - Cardiac pacemaker insertion [Recovering/Resolving]
  - Atrioventricular block second degree [Unknown]
  - Supraventricular tachycardia [Unknown]
  - Dizziness [Unknown]
  - Ligament sprain [Unknown]
  - Musculoskeletal chest pain [Unknown]
